FAERS Safety Report 4714332-0 (Version None)
Quarter: 2005Q3

REPORT INFORMATION
  Report Type: 
  Country: None (occurrence: None)
  Receive Date: 20050714
  Receipt Date: 20050315
  Transmission Date: 20060218
  Serious: Yes (Hospitalization)
  Sender: FDA-Public Use
  Company Number: US-KINGPHARMUSA00001-K200500369

PATIENT
  Age: 68 Year
  Sex: Female

DRUGS (4)
  1. ALTACE [Suspect]
     Dosage: 10 MG, QD
     Route: 048
     Dates: start: 20040615, end: 20050325
  2. TAHOR [Concomitant]
     Dosage: 80 MG, QD
     Route: 048
     Dates: start: 20040715, end: 20050204
  3. PLAVIX [Concomitant]
     Dosage: 75 MG, QD
     Route: 048
     Dates: start: 20040615
  4. FLUDEX [Suspect]
     Dosage: 1.5 MG, QD
     Route: 048
     Dates: start: 20040615, end: 20050325

REACTIONS (5)
  - C-REACTIVE PROTEIN INCREASED [None]
  - ERYTHEMA NODOSUM [None]
  - ESCHERICHIA URINARY TRACT INFECTION [None]
  - PRURITUS [None]
  - RED BLOOD CELL SEDIMENTATION RATE INCREASED [None]
